FAERS Safety Report 20186208 (Version 5)
Quarter: 2022Q1

REPORT INFORMATION
  Report Type: Spontaneous
  Country: ES (occurrence: ES)
  Receive Date: 20211215
  Receipt Date: 20220218
  Transmission Date: 20220423
  Serious: Yes (Other)
  Sender: FDA-Public Use
  Company Number: ES-STADA-237967

PATIENT
  Age: 66 Year
  Sex: Female

DRUGS (28)
  1. DULOXETINE [Suspect]
     Active Substance: DULOXETINE
     Indication: Headache
     Dosage: UNK
     Route: 065
  2. DULOXETINE [Suspect]
     Active Substance: DULOXETINE
     Indication: Headache
  3. OMEPRAZOLE [Suspect]
     Active Substance: OMEPRAZOLE
     Indication: Headache
     Dosage: 25 MILLIGRAM, INTERVAL: THRICE A DAY
     Route: 065
  4. OMEPRAZOLE [Suspect]
     Active Substance: OMEPRAZOLE
     Dosage: 75 MILLIGRAM, ONCE A DAY
     Route: 065
  5. MIRTAZAPINE [Suspect]
     Active Substance: MIRTAZAPINE
     Indication: Headache
     Dosage: UNK
     Route: 065
  6. LAMOTRIGINE [Suspect]
     Active Substance: LAMOTRIGINE
     Indication: Headache
     Dosage: UNK
     Route: 065
  7. LAMOTRIGINE [Suspect]
     Active Substance: LAMOTRIGINE
     Indication: Headache
  8. PREGABALIN [Suspect]
     Active Substance: PREGABALIN
     Indication: Headache
     Dosage: UNK
     Route: 065
  9. PREGABALIN [Suspect]
     Active Substance: PREGABALIN
     Indication: Headache
  10. TOPIRAMATE [Suspect]
     Active Substance: TOPIRAMATE
     Indication: Headache
     Dosage: UNK
     Route: 065
  11. TOPIRAMATE [Suspect]
     Active Substance: TOPIRAMATE
     Indication: Headache
  12. AMITRIPTYLINE [Suspect]
     Active Substance: AMITRIPTYLINE
     Indication: Headache
     Dosage: UNK
     Route: 065
  13. BOTULINUM TOXIN NOS [Suspect]
     Active Substance: BOTULINUM TOXIN NOS
     Indication: Headache
     Dosage: UNK
     Route: 065
  14. CARBAMAZEPINE [Suspect]
     Active Substance: CARBAMAZEPINE
     Indication: Headache
     Dosage: UNK
     Route: 065
  15. CARBAMAZEPINE [Suspect]
     Active Substance: CARBAMAZEPINE
     Indication: Headache
  16. CELECOXIB [Suspect]
     Active Substance: CELECOXIB
     Indication: Headache
     Dosage: UNK
     Route: 065
  17. INDOMETHACIN [Suspect]
     Active Substance: INDOMETHACIN
     Indication: Headache
     Dosage: 25 MILLIGRAM, INTERVAL : THRICE A DAY
     Route: 065
  18. INDOMETHACIN [Suspect]
     Active Substance: INDOMETHACIN
     Dosage: 75 MILLIGRAM, ONCE A DAY
     Route: 065
  19. INDOMETHACIN [Suspect]
     Active Substance: INDOMETHACIN
     Dosage: UNK
     Route: 065
  20. LITHIUM [Suspect]
     Active Substance: LITHIUM
     Indication: Headache
     Dosage: UNK
     Route: 065
  21. LITHIUM [Suspect]
     Active Substance: LITHIUM
     Indication: Headache
  22. NEBIVOLOL [Suspect]
     Active Substance: NEBIVOLOL
     Indication: Headache
     Dosage: UNK
     Route: 065
  23. NEBIVOLOL [Suspect]
     Active Substance: NEBIVOLOL
     Indication: Headache
  24. PREDNISONE [Suspect]
     Active Substance: PREDNISONE
     Indication: Headache
     Dosage: UNK
     Route: 065
  25. SUMATRIPTAN [Suspect]
     Active Substance: SUMATRIPTAN
     Indication: Headache
     Dosage: UNK
     Route: 065
  26. GALCANEZUMAB [Concomitant]
     Active Substance: GALCANEZUMAB
     Indication: Headache
     Dosage: 240 MILLIGRAM
     Route: 065
  27. GALCANEZUMAB [Concomitant]
     Active Substance: GALCANEZUMAB
     Dosage: 120 MILLIGRAM, MONTHLY
     Route: 065
  28. NAPROXEN [Concomitant]
     Active Substance: NAPROXEN
     Indication: Headache
     Dosage: UNK
     Route: 065

REACTIONS (6)
  - Epigastric discomfort [Unknown]
  - Balance disorder [Unknown]
  - Dizziness [Unknown]
  - Nausea [Unknown]
  - Drug ineffective [Unknown]
  - Off label use [Unknown]
